FAERS Safety Report 6462536-1 (Version None)
Quarter: 2009Q4

REPORT INFORMATION
  Report Type: 
  Country: None (occurrence: None)
  Receive Date: 20091130
  Receipt Date: 20091105
  Transmission Date: 20100525
  Serious: Yes (Hospitalization)
  Sender: FDA-Public Use
  Company Number: JP-B.I. PHARMACEUTICALS,INC./RIDGEFIELD-2009-BP-13749YA

PATIENT
  Sex: Male

DRUGS (4)
  1. TAMSULOSIN HYDROCHLORIDE [Suspect]
     Route: 048
  2. DIGOXIN [Concomitant]
  3. LASIX [Concomitant]
  4. DIART (AZOSEMIDE) [Concomitant]

REACTIONS (1)
  - THROMBOCYTOPENIA [None]
